FAERS Safety Report 16238767 (Version 1)
Quarter: 2019Q2

REPORT INFORMATION
  Report Type: Spontaneous
  Country: US (occurrence: US)
  Receive Date: 20190425
  Receipt Date: 20190425
  Transmission Date: 20190711
  Serious: Yes (Hospitalization)
  Sender: FDA-Public Use
  Company Number: US-VERTEX PHARMACEUTICALS-2019-003488

PATIENT
  Age: 6 Year
  Sex: Male

DRUGS (8)
  1. WAL ITIN [Concomitant]
     Active Substance: LORATADINE
  2. GUANFACINE. [Concomitant]
     Active Substance: GUANFACINE
  3. DEXTROAMPHETAMINE                  /00016601/ [Concomitant]
     Active Substance: DEXTROAMPHETAMINE
  4. VENTOLIN [Concomitant]
     Active Substance: ALBUTEROL SULFATE
  5. KALYDECO [Suspect]
     Active Substance: IVACAFTOR
     Indication: CYSTIC FIBROSIS
     Dosage: 150 MG, BID
     Route: 048
     Dates: start: 20190304
  6. POLYMYXIN B -TRIMETHOPRIM OPHTHA. [Concomitant]
  7. LINEZOLID. [Concomitant]
     Active Substance: LINEZOLID
  8. METHYLPHENIDATE. [Concomitant]
     Active Substance: METHYLPHENIDATE

REACTIONS (1)
  - Dyspnoea [Unknown]

NARRATIVE: CASE EVENT DATE: 20190412
